FAERS Safety Report 14377409 (Version 1)
Quarter: 2018Q1

REPORT INFORMATION
  Report Type: Spontaneous
  Country: US (occurrence: US)
  Receive Date: 20180111
  Receipt Date: 20180111
  Transmission Date: 20180509
  Serious: No
  Sender: FDA-Public Use
  Company Number: US-GUERBET-US-20170136

PATIENT
  Age: 77 Year
  Sex: Female

DRUGS (1)
  1. DOTAREM [Suspect]
     Active Substance: GADOTERATE MEGLUMINE
     Indication: ANGIOGRAM
     Route: 042
     Dates: start: 20170714, end: 20170714

REACTIONS (1)
  - Feeling hot [Recovered/Resolved]

NARRATIVE: CASE EVENT DATE: 20170714
